FAERS Safety Report 12746333 (Version 5)
Quarter: 2017Q1

REPORT INFORMATION
  Report Type: Spontaneous
  Country: JP (occurrence: JP)
  Receive Date: 20160915
  Receipt Date: 20170216
  Transmission Date: 20170428
  Serious: Yes (Other)
  Sender: FDA-Public Use
  Company Number: JP-PFIZER INC-2016427596

PATIENT
  Age: 32 Year
  Sex: Male
  Weight: 66.3 kg

DRUGS (21)
  1. FOSPHENYTOIN SODIUM. [Suspect]
     Active Substance: FOSPHENYTOIN SODIUM
     Indication: SEIZURE
     Dosage: 750 MG, 1X/DAY (750 MG, 1 IN 1 D)
     Route: 042
     Dates: start: 20160530, end: 20160602
  2. BRIDION [Concomitant]
     Active Substance: SUGAMMADEX
     Indication: NEUROMUSCULAR BLOCKADE REVERSAL
     Dosage: 400 MG, DAILY (200 MG,2 IN 1 D)
     Route: 042
     Dates: start: 20160602, end: 20160602
  3. DEPAKENE [Concomitant]
     Active Substance: VALPROIC ACID
     Indication: CONVULSION PROPHYLAXIS
     Dosage: 800 MG, (400 MG, 2 IN 1 D)
     Route: 048
     Dates: start: 20110304
  4. E KEPPRA [Concomitant]
     Active Substance: LEVETIRACETAM
     Indication: CONVULSION PROPHYLAXIS
     Dosage: 1000 MG, (500 MG, 2 IN 1 D)
     Route: 048
     Dates: start: 20111228
  5. PHENYTOIN. [Suspect]
     Active Substance: PHENYTOIN
     Indication: CONVULSION PROPHYLAXIS
     Dosage: 750 MG, UNK
  6. FENTANYL. [Concomitant]
     Active Substance: FENTANYL
     Indication: ANALGESIC THERAPY
     Dosage: (9 IN 1 D))
     Route: 042
     Dates: start: 20160602, end: 20160602
  7. ROPION [Concomitant]
     Active Substance: FLURBIPROFEN AXETIL
     Indication: ANALGESIC THERAPY
     Dosage: 100 MG (50 MG, 2 IN 1 D)
     Route: 042
     Dates: start: 20160602, end: 20160602
  8. PROPOFOL. [Suspect]
     Active Substance: PROPOFOL
     Indication: GENERAL ANAESTHESIA
     Dosage: UNK
     Route: 065
  9. REMIFENTANIL HYDROCHLORIDE [Concomitant]
     Active Substance: REMIFENTANIL HYDROCHLORIDE
     Indication: GENERAL ANAESTHESIA
     Dosage: UNK
     Route: 065
  10. GASTER [Concomitant]
     Active Substance: FAMOTIDINE
     Indication: GASTRITIS PROPHYLAXIS
     Dosage: 20 MG, 1X/DAY
     Route: 042
     Dates: start: 20160602, end: 20160602
  11. ACELIO [Concomitant]
     Active Substance: ACETAMINOPHEN
     Indication: ANALGESIC THERAPY
     Dosage: 1000 MG, 1X/DAY
     Route: 042
     Dates: start: 20160602, end: 20160602
  12. ESLAX [Concomitant]
     Active Substance: ROCURONIUM BROMIDE
     Indication: HYPOTONIA
     Dosage: 40 MG, (10 MG, 4 IN 1 D)
     Route: 042
     Dates: start: 20160602, end: 20160602
  13. FOSPHENYTOIN SODIUM. [Suspect]
     Active Substance: FOSPHENYTOIN SODIUM
     Indication: ANAPLASTIC OLIGODENDROGLIOMA
     Dosage: 250 MG, 2X/DAY (250 MG, 2 IN 1 D)
     Route: 042
     Dates: start: 20160602, end: 20160602
  14. DIPRIVAN [Concomitant]
     Active Substance: PROPOFOL
     Indication: MAINTENANCE OF ANAESTHESIA
     Dosage: (1 D)
     Route: 042
     Dates: start: 20160602, end: 20160603
  15. EPHEDRIN [Concomitant]
     Active Substance: EPHEDRINE HYDROCHLORIDE
     Indication: BLOOD PRESSURE MANAGEMENT
     Dosage: 36 MG, (4 MG, 9 IN 1 D)
     Route: 042
     Dates: start: 20160602, end: 20160602
  16. NEO-SYNESIN [Concomitant]
     Active Substance: PHENYLEPHRINE HYDROCHLORIDE
     Indication: BLOOD PRESSURE MANAGEMENT
     Dosage: (14 IN 1 D)
     Route: 042
     Dates: start: 20160602, end: 20160602
  17. PRIMPERAN [Concomitant]
     Active Substance: METOCLOPRAMIDE HYDROCHLORIDE
     Indication: PROPHYLAXIS OF NAUSEA AND VOMITING
     Dosage: 20 MG, 1X/DAY
     Route: 042
     Dates: start: 20160602, end: 20160602
  18. ULTIVA [Concomitant]
     Active Substance: REMIFENTANIL HYDROCHLORIDE
     Indication: ANALGESIC THERAPY
     Dosage: (1 D)
     Route: 042
     Dates: start: 20160602, end: 20160602
  19. DEXART [Concomitant]
     Active Substance: DEXAMETHASONE SODIUM PHOSPHATE
     Indication: PROPHYLAXIS OF NAUSEA AND VOMITING
     Dosage: 6.6 MG, 1X/DAY
     Route: 042
     Dates: start: 20160602, end: 20160602
  20. PETHIDINE HYDROCHLORIDE [Concomitant]
     Active Substance: MEPERIDINE HYDROCHLORIDE
     Indication: ANALGESIC THERAPY
     Dosage: 35 MG, 1X/DAY
     Route: 042
     Dates: start: 20160602, end: 20160602
  21. ONOACT [Concomitant]
     Active Substance: LANDIOLOL HYDROCHLORIDE
     Indication: BRADYCARDIA
     Dosage: 10 MG, 1X/DAY
     Route: 042
     Dates: start: 20160602, end: 20160602

REACTIONS (4)
  - Brain oedema [Recovered/Resolved]
  - Laryngospasm [Recovered/Resolved]
  - Delayed recovery from anaesthesia [Recovered/Resolved]
  - Cerebral haemorrhage [Unknown]

NARRATIVE: CASE EVENT DATE: 20160602
